FAERS Safety Report 14398147 (Version 4)
Quarter: 2018Q1

REPORT INFORMATION
  Report Type: Spontaneous
  Country: NL (occurrence: NL)
  Receive Date: 20180116
  Receipt Date: 20180130
  Transmission Date: 20180509
  Serious: Yes (Hospitalization, Other)
  Sender: FDA-Public Use
  Company Number: NL-ALLERGAN-1801724US

PATIENT
  Age: 13 Year
  Sex: Male
  Weight: 32 kg

DRUGS (9)
  1. CLONAZEPAM. [Concomitant]
     Active Substance: CLONAZEPAM
     Dosage: 7.5 MG, UNK
     Route: 065
  2. MACROGOLPOEDER [Concomitant]
     Dosage: ODD 1 ZAKJE
     Route: 065
  3. LEVETIRACETAM DRANK [Concomitant]
     Dosage: 3 DD 8
     Route: 065
     Dates: start: 20150925
  4. FENOBARBITAL DRANK [Concomitant]
     Dosage: 3 DD 5,5 ML
     Route: 065
     Dates: start: 20150925
  5. BACOFEN [Concomitant]
     Active Substance: BACLOFEN
     Dosage: 3 MG/ML, TID
     Route: 065
     Dates: start: 20150925
  6. VALPROINEZUUR DRANK [Concomitant]
     Dosage: 6.5 ML, TID
     Route: 065
     Dates: start: 20140228
  7. BOTULINUM TOXIN TYPE A UNK [Suspect]
     Active Substance: BOTULINUM TOXIN TYPE A
     Indication: MUSCLE SPASTICITY
     Dosage: 400 UNITS, SINGLE
     Route: 030
     Dates: start: 20170629, end: 20170629
  8. SALBUTAMOL NEBULES [Concomitant]
     Dosage: 2DD1 ZN
     Route: 065
  9. OMEPRAZOL [Concomitant]
     Active Substance: OMEPRAZOLE
     Dosage: 20 MG, QD
     Route: 065
     Dates: start: 20150925

REACTIONS (2)
  - Overdose [Unknown]
  - Glossopharyngeal nerve disorder [Not Recovered/Not Resolved]

NARRATIVE: CASE EVENT DATE: 20170704
